FAERS Safety Report 24665101 (Version 3)
Quarter: 2024Q4

REPORT INFORMATION
  Report Type: Spontaneous
  Country: US (occurrence: US)
  Receive Date: 20241126
  Receipt Date: 20241204
  Transmission Date: 20250114
  Serious: No
  Sender: MYLAN
  Company Number: US-MYLANLABS-2024M1103110

PATIENT
  Age: 83 Year
  Sex: Female
  Weight: 83.91 kg

DRUGS (1)
  1. BREYNA [Suspect]
     Active Substance: BUDESONIDE\FORMOTEROL FUMARATE
     Indication: Bronchiectasis
     Dosage: 320/9 MICROGRAM, QD (TWO PUFFS, ONCE A DAY)
     Route: 055
     Dates: start: 20241110

REACTIONS (4)
  - Device difficult to use [Unknown]
  - Off label use [Unknown]
  - Device issue [Unknown]
  - Device delivery system issue [Unknown]

NARRATIVE: CASE EVENT DATE: 20241101
